FAERS Safety Report 4492091-7 (Version None)
Quarter: 2004Q3

REPORT INFORMATION
  Report Type: 
  Country: None (occurrence: None)
  Receive Date: 20040922
  Receipt Date: 20040629
  Transmission Date: 20050211
  Serious: Yes (Hospitalization)
  Sender: FDA-Public Use
  Company Number: HQWYE824330JUN04

PATIENT
  Age: 48 Year
  Sex: Female

DRUGS (4)
  1. RAPAMUNE [Suspect]
     Indication: RENAL TRANSPLANT
     Dosage: 1 MG 1X PER 1 DAY, ORAL
     Route: 048
     Dates: start: 20030101
  2. URISED (ATROPINE SULFATE/BENZOIC ACID/GELSEMIUM/HYOSCYAMINE/METHENAMIN [Concomitant]
  3. URSODIOL (URSODEOXYCHOLIC ACID) [Concomitant]
  4. CALCIUM (CALCIUM) [Concomitant]

REACTIONS (1)
  - HEPATOTOXICITY [None]
